FAERS Safety Report 10076742 (Version 1)
Quarter: 2014Q2

REPORT INFORMATION
  Report Type: Spontaneous
  Country: US (occurrence: None)
  Receive Date: 20140411
  Receipt Date: 20140411
  Transmission Date: 20141212
  Serious: Yes (Hospitalization, Disabling, Other)
  Sender: FDA-Public Use
  Company Number: None

PATIENT
  Age: 34 Year
  Sex: Female
  Weight: 54.43 kg

DRUGS (1)
  1. LIDOCAINE [Suspect]
     Indication: SELF-MEDICATION
     Dates: start: 20110614, end: 20120122

REACTIONS (2)
  - Hypoaesthesia [None]
  - Intentional product misuse [None]
